FAERS Safety Report 5113273-7 (Version None)
Quarter: 2006Q3

REPORT INFORMATION
  Report Type: 
  Country: None (occurrence: None)
  Receive Date: 20060920
  Receipt Date: 20060905
  Transmission Date: 20061208
  Serious: Yes (Life-Threatening, Other)
  Sender: FDA-Public Use
  Company Number: FACT0600087

PATIENT
  Age: 37 Year
  Sex: Female
  Weight: 81.2 kg

DRUGS (5)
  1. FACTIVE [Suspect]
     Indication: RESPIRATORY TRACT INFECTION BACTERIAL
     Dosage: 320 MG, QD, ORAL
     Route: 048
  2. DIPHENHYDRAMINE HCL [Concomitant]
  3. CLARITIN [Concomitant]
  4. ADVAIR DISKUS (FLUTICASONE PROPIONATE, SALMETEROL XINAFOATE) [Concomitant]
  5. SEREVENT [Concomitant]

REACTIONS (2)
  - ANAPHYLACTIC REACTION [None]
  - DRUG EFFECT DECREASED [None]
